FAERS Safety Report 7091394-X (Version None)
Quarter: 2010Q4

REPORT INFORMATION
  Report Type: 
  Country: None (occurrence: None)
  Receive Date: 20101109
  Receipt Date: 20101103
  Transmission Date: 20110411
  Serious: Yes (Hospitalization, Other)
  Sender: FDA-Public Use
  Company Number: A0891270A

PATIENT
  Sex: Male
  Weight: 67 kg

DRUGS (3)
  1. AVANDAMET [Suspect]
     Dosage: 3TAB PER DAY
     Dates: start: 20070101
  2. DIOVAN [Concomitant]
     Dosage: 1TAB PER DAY
     Dates: start: 20070101
  3. CONCOR [Concomitant]
     Dosage: 10MG PER DAY
     Dates: start: 20070101

REACTIONS (9)
  - ANXIETY [None]
  - CAROTID ARTERY OCCLUSION [None]
  - CAROTID ARTERY STENT INSERTION [None]
  - CONSTIPATION [None]
  - HYPERCHOLESTEROLAEMIA [None]
  - INSOMNIA [None]
  - MALAISE [None]
  - SOMNOLENCE [None]
  - UNDERDOSE [None]
